FAERS Safety Report 25347006 (Version 1)
Quarter: 2025Q2

REPORT INFORMATION
  Report Type: Spontaneous
  Country: US (occurrence: US)
  Receive Date: 20250522
  Receipt Date: 20250522
  Transmission Date: 20250717
  Serious: Yes (Other)
  Sender: MYLAN
  Company Number: US-MYLANLABS-2025M1043277

PATIENT
  Age: 58 Year
  Sex: Female

DRUGS (12)
  1. GEMCITABINE [Suspect]
     Active Substance: GEMCITABINE
     Indication: Pancreatic carcinoma metastatic
  2. GEMCITABINE [Suspect]
     Active Substance: GEMCITABINE
     Route: 065
  3. GEMCITABINE [Suspect]
     Active Substance: GEMCITABINE
     Route: 065
  4. GEMCITABINE [Suspect]
     Active Substance: GEMCITABINE
  5. PACLITAXEL [Suspect]
     Active Substance: PACLITAXEL
     Indication: Pancreatic carcinoma metastatic
  6. PACLITAXEL [Suspect]
     Active Substance: PACLITAXEL
     Route: 065
  7. PACLITAXEL [Suspect]
     Active Substance: PACLITAXEL
     Route: 065
  8. PACLITAXEL [Suspect]
     Active Substance: PACLITAXEL
  9. IVOSPEMIN [Suspect]
     Active Substance: IVOSPEMIN
     Indication: Pancreatic carcinoma metastatic
  10. IVOSPEMIN [Suspect]
     Active Substance: IVOSPEMIN
     Route: 065
  11. IVOSPEMIN [Suspect]
     Active Substance: IVOSPEMIN
     Route: 065
  12. IVOSPEMIN [Suspect]
     Active Substance: IVOSPEMIN

REACTIONS (4)
  - Neutropenia [Unknown]
  - Retinal toxicity [Unknown]
  - Drug ineffective [Unknown]
  - Disease progression [Unknown]
